FAERS Safety Report 15851635 (Version 2)
Quarter: 2020Q1

REPORT INFORMATION
  Report Type: Spontaneous
  Country: US (occurrence: US)
  Receive Date: 20190122
  Receipt Date: 20200114
  Transmission Date: 20200409
  Serious: Yes (Other)
  Sender: FDA-Public Use
  Company Number: US-ROCHE-2247754

PATIENT
  Age: 57 Year
  Sex: Male
  Weight: 86.26 kg

DRUGS (8)
  1. GILENYA [Concomitant]
     Active Substance: FINGOLIMOD HYDROCHLORIDE
     Indication: MULTIPLE SCLEROSIS
  2. OCREVUS [Suspect]
     Active Substance: OCRELIZUMAB
     Dosage: FULL DOSE
     Route: 042
     Dates: start: 201812
  3. METHADONE [Concomitant]
     Active Substance: METHADONE HYDROCHLORIDE
     Route: 048
  4. OCREVUS [Suspect]
     Active Substance: OCRELIZUMAB
     Indication: PRIMARY PROGRESSIVE MULTIPLE SCLEROSIS
     Dosage: TWO HALF DOSES
     Route: 042
     Dates: start: 20180614
  5. IBUPROFEN. [Concomitant]
     Active Substance: IBUPROFEN
     Route: 048
  6. CYCLOBENZAPRINE. [Concomitant]
     Active Substance: CYCLOBENZAPRINE
     Route: 048
  7. GABAPENTIN. [Concomitant]
     Active Substance: GABAPENTIN
     Route: 048
  8. LOSARTAN. [Concomitant]
     Active Substance: LOSARTAN
     Route: 048

REACTIONS (10)
  - Spinal column injury [Recovered/Resolved]
  - Muscle spasticity [Not Recovered/Not Resolved]
  - Back pain [Recovered/Resolved]
  - Therapeutic product effect decreased [Unknown]
  - Balance disorder [Not Recovered/Not Resolved]
  - Pain in extremity [Recovered/Resolved]
  - Fall [Unknown]
  - Injury [Recovered/Resolved]
  - Skin discolouration [Recovered/Resolved]
  - Skin abrasion [Recovered/Resolved]

NARRATIVE: CASE EVENT DATE: 201811
